FAERS Safety Report 25476548 (Version 1)
Quarter: 2025Q2

REPORT INFORMATION
  Report Type: Spontaneous
  Country: PL (occurrence: PL)
  Receive Date: 20250625
  Receipt Date: 20250625
  Transmission Date: 20250717
  Serious: Yes (Life-Threatening)
  Sender: BAXTER
  Company Number: None

PATIENT
  Age: 70 Year
  Sex: Female
  Weight: 70 kg

DRUGS (5)
  1. WATER [Suspect]
     Active Substance: WATER
     Indication: Medication dilution
     Route: 042
  2. MARCAINE [Suspect]
     Active Substance: BUPIVACAINE HYDROCHLORIDE
     Indication: Anaesthesia
     Route: 037
     Dates: start: 20210505, end: 20210505
  3. POVIDONE-IODINE [Suspect]
     Active Substance: POVIDONE-IODINE
     Indication: Infection prophylaxis
     Route: 003
     Dates: start: 20210505, end: 20210505
  4. CALCIUM CHLORIDE\MAGNESIUM CHLORIDE\POTASSIUM CHLORIDE\SODIUM ACETATE\ [Suspect]
     Active Substance: CALCIUM CHLORIDE\MAGNESIUM CHLORIDE\POTASSIUM CHLORIDE\SODIUM ACETATE\SODIUM CHLORIDE\SODIUM CITRATE
     Indication: Fluid replacement
     Route: 042
     Dates: start: 20210505, end: 20210505
  5. 2-PHENYLPHENOL\ISOPROPYL ALCOHOL\PROPYL ALCOHOL [Suspect]
     Active Substance: 2-PHENYLPHENOL\ISOPROPYL ALCOHOL\PROPYL ALCOHOL
     Indication: Infection prophylaxis
     Route: 003
     Dates: start: 20210505, end: 20210505

REACTIONS (2)
  - Urticaria [Recovered/Resolved]
  - Pruritus [Recovered/Resolved]

NARRATIVE: CASE EVENT DATE: 20210505
